FAERS Safety Report 4546241-4 (Version None)
Quarter: 2005Q1

REPORT INFORMATION
  Report Type: 
  Country: None (occurrence: None)
  Receive Date: 20050103
  Receipt Date: 20041221
  Transmission Date: 20050727
  Serious: Yes (Other)
  Sender: FDA-Public Use
  Company Number: 2004117950

PATIENT
  Age: 60 Year
  Sex: Female

DRUGS (7)
  1. CELEBREX [Suspect]
     Indication: OSTEOARTHRITIS
     Dosage: 600 MG (200 MG, 3 IN 1 D), ORAL
     Route: 048
     Dates: start: 20031101
  2. DICLOFENAC SODIUM [Concomitant]
  3. FLUPIRTINE MALEATE (FLUPIRTINE MALEATE) [Concomitant]
  4. DIAZEPAM [Concomitant]
  5. ESCLEROBION (PYRICARBATE, PYRITINOL, TOCOPHERYL NICOTINATE) [Concomitant]
  6. NANDROLONE DECANOATE (NANDROLONE DECANOATE) [Concomitant]
  7. TIOSCINA (ESCIN, THIOCOLCHICOSIDE) [Concomitant]

REACTIONS (5)
  - BLOOD PRESSURE DECREASED [None]
  - BLOOD PRESSURE INCREASED [None]
  - CHEST PAIN [None]
  - HEART RATE INCREASED [None]
  - PALPITATIONS [None]
